FAERS Safety Report 5412137-9 (Version None)
Quarter: 2007Q3

REPORT INFORMATION
  Report Type: 
  Country: None (occurrence: None)
  Receive Date: 20070713
  Receipt Date: 20070330
  Transmission Date: 20080115
  Serious: No
  Sender: FDA-Public Use
  Company Number: 2007SP001172

PATIENT
  Age: 63 Year
  Sex: Female
  Weight: 106.5953 kg

DRUGS (5)
  1. LUNESTA [Suspect]
     Indication: INSOMNIA
     Dosage: 1X; ORAL
     Route: 048
     Dates: start: 20070329, end: 20070329
  2. DUONEB [Concomitant]
  3. PULMICORT [Concomitant]
  4. CLONAZEPAM [Concomitant]
  5. OXYGEN [Concomitant]

REACTIONS (2)
  - DYSGEUSIA [None]
  - INITIAL INSOMNIA [None]
